FAERS Safety Report 4457435-0 (Version None)
Quarter: 2004Q3

REPORT INFORMATION
  Report Type: 
  Country: None (occurrence: None)
  Receive Date: 20040922
  Receipt Date: 20040910
  Transmission Date: 20050211
  Serious: No
  Sender: FDA-Public Use
  Company Number: USA040874513

PATIENT
  Age: 58 Year
  Sex: Female

DRUGS (6)
  1. FORTEO [Suspect]
     Indication: OSTEOPOROSIS
     Dosage: 20 UG DAY
     Dates: start: 20040731
  2. SYNTHROID [Concomitant]
  3. ASPIRIN [Concomitant]
  4. CITRACAL WITH VITAMIN D [Concomitant]
  5. VERELAN(VERAPAMIL HYDROCHLORIDE) [Concomitant]
  6. KETOCONAZOLE [Concomitant]

REACTIONS (4)
  - DIZZINESS [None]
  - INSOMNIA [None]
  - PALPITATIONS [None]
  - PHARMACEUTICAL PRODUCT COMPLAINT [None]
